FAERS Safety Report 18430877 (Version 1)
Quarter: 2020Q4

REPORT INFORMATION
  Report Type: Spontaneous
  Country: US (occurrence: US)
  Receive Date: 20201026
  Receipt Date: 20201026
  Transmission Date: 20210114
  Serious: Yes (Other)
  Sender: FDA-Public Use
  Company Number: None

PATIENT
  Age: 46 Year
  Sex: Female
  Weight: 71.1 kg

DRUGS (1)
  1. LEVOFLOXACIN. [Suspect]
     Active Substance: LEVOFLOXACIN
     Indication: URINARY TRACT INFECTION
     Dosage: ?          QUANTITY:10 TABLET(S);?
     Route: 048
     Dates: start: 20200916, end: 20200922

REACTIONS (12)
  - Tendon injury [None]
  - Product label issue [None]
  - Recalled product [None]
  - Asthenia [None]
  - Back pain [None]
  - Immobile [None]
  - Tendonitis [None]
  - Arthropathy [None]
  - Peripheral swelling [None]
  - Pain in extremity [None]
  - Arthralgia [None]
  - Quality of life decreased [None]

NARRATIVE: CASE EVENT DATE: 20200921
